FAERS Safety Report 7666174-4 (Version None)
Quarter: 2011Q3

REPORT INFORMATION
  Report Type: 
  Country: None (occurrence: None)
  Receive Date: 20110806
  Receipt Date: 20110624
  Transmission Date: 20111222
  Serious: No
  Sender: FDA-Public Use
  Company Number: US-ABBOTT-11P-163-0834396-00

PATIENT
  Sex: Male
  Weight: 88.076 kg

DRUGS (5)
  1. NIASPAN [Suspect]
     Dates: start: 20110101
  2. L-CARNATINE [Concomitant]
     Indication: SUPPLEMENTATION THERAPY
     Dates: start: 20110501
  3. VITAMIN B-12 [Concomitant]
     Indication: VITAMIN SUPPLEMENTATION
     Dates: start: 20110501
  4. NIASPAN [Suspect]
     Indication: BLOOD CHOLESTEROL INCREASED
     Dates: start: 20100601, end: 20101201
  5. LOVASA [Concomitant]
     Indication: BLOOD CHOLESTEROL INCREASED

REACTIONS (1)
  - PRURITUS [None]
